FAERS Safety Report 15215638 (Version 1)
Quarter: 2018Q3

REPORT INFORMATION
  Report Type: Spontaneous
  Country: US (occurrence: US)
  Receive Date: 20180703
  Receipt Date: 20180703
  Transmission Date: 20181010
  Serious: No
  Sender: FDA-Public Use
  Company Number: None

PATIENT
  Age: 67 Year
  Sex: Male
  Weight: 62.6 kg

DRUGS (1)
  1. GOCOVRI [Suspect]
     Active Substance: AMANTADINE
     Route: 048

REACTIONS (4)
  - Wrong schedule [None]
  - Somnolence [None]
  - Dizziness [None]
  - Dyschromatopsia [None]

NARRATIVE: CASE EVENT DATE: 20180606
